FAERS Safety Report 8545801-3 (Version None)
Quarter: 2012Q3

REPORT INFORMATION
  Report Type: 
  Country: None (occurrence: None)
  Receive Date: 20120727
  Receipt Date: 20120719
  Transmission Date: 20120928
  Serious: Yes (Other)
  Sender: FDA-Public Use
  Company Number: CN-BAXTER-2012BAX012439

PATIENT
  Sex: Male
  Weight: 30 kg

DRUGS (2)
  1. CEFTIZOXIME [Suspect]
     Dosage: W/DEXTROSE AS SOLVENT
     Route: 041
     Dates: start: 20110704, end: 20110704
  2. 5% GLUCOSE  INJECTION [Suspect]
     Indication: MEDICATION DILUTION
     Dosage: W/CEFTIZOXIME 1GM
     Route: 041
     Dates: start: 20110704, end: 20110704

REACTIONS (5)
  - HYPERPYREXIA [None]
  - CHEST DISCOMFORT [None]
  - DYSPNOEA [None]
  - CHILLS [None]
  - PERIPHERAL COLDNESS [None]
